FAERS Safety Report 9373808 (Version 1)
Quarter: 2013Q2

REPORT INFORMATION
  Report Type: Report from Study
  Country: CO (occurrence: CO)
  Receive Date: 20130628
  Receipt Date: 20130628
  Transmission Date: 20140414
  Serious: Yes (Other)
  Sender: FDA-Public Use
  Company Number: CO-ROCHE-1242288

PATIENT
  Sex: Male

DRUGS (1)
  1. LUCENTIS [Suspect]
     Indication: EYE HAEMORRHAGE
     Route: 050
     Dates: start: 20120920

REACTIONS (1)
  - Eye haemorrhage [Unknown]
